FAERS Safety Report 9715079 (Version 1)
Quarter: 2013Q4

REPORT INFORMATION
  Report Type: Spontaneous
  Country: US (occurrence: US)
  Receive Date: 20131126
  Receipt Date: 20131126
  Transmission Date: 20140711
  Serious: No
  Sender: FDA-Public Use
  Company Number: US-NOVEN-13US007972

PATIENT
  Sex: Female

DRUGS (3)
  1. MINIVELLE [Suspect]
     Indication: PRODUCT USED FOR UNKNOWN INDICATION
     Dosage: 0.1 MG/QD, UNK
     Route: 062
  2. MINIVELLE [Suspect]
     Dosage: 0.075 MG/QD, UNK
     Route: 062
  3. MINIVELLE [Suspect]
     Dosage: 0.0375 MG/QD, UNK
     Route: 062
     Dates: start: 2013, end: 2013

REACTIONS (5)
  - Application site discolouration [Not Recovered/Not Resolved]
  - Application site rash [Recovered/Resolved]
  - Application site pruritus [Recovered/Resolved]
  - Application site hypersensitivity [Unknown]
  - Application site erythema [Recovered/Resolved]
